FAERS Safety Report 5623876-9 (Version None)
Quarter: 2008Q1

REPORT INFORMATION
  Report Type: 
  Country: None (occurrence: None)
  Receive Date: 20080207
  Receipt Date: 20080128
  Transmission Date: 20080703
  Serious: Yes (Hospitalization)
  Sender: FDA-Public Use
  Company Number: DSJ-2008-00909

PATIENT
  Age: 62 Year
  Sex: Female
  Weight: 56 kg

DRUGS (7)
  1. OLMESARTAN MEDOXOMIL [Suspect]
     Indication: ESSENTIAL HYPERTENSION
     Dosage: 20 MG (1 IN 1 D), PER ORAL
     Route: 048
     Dates: start: 20060914, end: 20071108
  2. AMLODIPINE [Suspect]
     Indication: ESSENTIAL HYPERTENSION
     Dosage: 2.5 MG (2.5 MG, 1 1IN 1 D), PER ORAL;  2.5 MG (1 IN 1 D), PER ORAL
     Route: 048
     Dates: end: 20060913
  3. AMLODIPINE [Suspect]
     Indication: ESSENTIAL HYPERTENSION
     Dosage: 2.5 MG (2.5 MG, 1 1IN 1 D), PER ORAL;  2.5 MG (1 IN 1 D), PER ORAL
     Route: 048
     Dates: start: 20060929, end: 20071108
  4. TENORMIN [Suspect]
     Dosage: 25 MG (25 MG, 1 IN 1 D), PER ORAL
     Route: 048
     Dates: start: 20070301, end: 20071108
  5. OMEPRAZOLE [Concomitant]
  6. MUCOSTA                                        (REBAMIPIDE) (REBAMIPID [Concomitant]
  7. DEPAS                                      (ETIZOLAM) (TABLET) (ETIZOL [Concomitant]

REACTIONS (2)
  - BLOOD PRESSURE DECREASED [None]
  - FEMUR FRACTURE [None]
